FAERS Safety Report 9155606 (Version 1)
Quarter: 2013Q1

REPORT INFORMATION
  Report Type: Spontaneous
  Country: US (occurrence: US)
  Receive Date: 20130311
  Receipt Date: 20130311
  Transmission Date: 20140127
  Serious: Yes (Other)
  Sender: FDA-Public Use
  Company Number: US-TEVA-389702USA

PATIENT
  Age: 6 None
  Sex: Female

DRUGS (2)
  1. ZOLPIDEM [Suspect]
  2. DIET PILL [Concomitant]

REACTIONS (5)
  - Road traffic accident [Unknown]
  - Impaired driving ability [Unknown]
  - Sleep disorder [Unknown]
  - Blood test abnormal [Unknown]
  - Disturbance in attention [Unknown]
